FAERS Safety Report 4971133-6 (Version None)
Quarter: 2006Q1

REPORT INFORMATION
  Report Type: 
  Country: None (occurrence: None)
  Receive Date: 20060223
  Receipt Date: 20050907
  Transmission Date: 20060701
  Serious: Yes (Hospitalization)
  Sender: FDA-Public Use
  Company Number: HQWYE336509SEP05

PATIENT
  Sex: Female

DRUGS (2)
  1. EFFEXOR [Suspect]
     Dosage: 350 MG 1X PER 1 DAY
  2. DEPAKOTE [Concomitant]

REACTIONS (1)
  - DEPRESSION [None]
